FAERS Safety Report 4477112-X (Version None)
Quarter: 2004Q4

REPORT INFORMATION
  Report Type: 
  Country: None (occurrence: None)
  Receive Date: 20041018
  Receipt Date: 20030707
  Transmission Date: 20050328
  Serious: No
  Sender: FDA-Public Use
  Company Number: PHHO2003CA08662

PATIENT
  Age: 35 Year
  Sex: Female

DRUGS (1)
  1. ZELNORM [Suspect]
     Indication: IRRITABLE BOWEL SYNDROME
     Dosage: 6 MG
     Route: 048
     Dates: start: 20030618, end: 20030618

REACTIONS (2)
  - DIARRHOEA [None]
  - MUSCLE CRAMP [None]
